FAERS Safety Report 19283923 (Version 13)
Quarter: 2023Q2

REPORT INFORMATION
  Report Type: Spontaneous
  Country: IN (occurrence: IN)
  Receive Date: 20210521
  Receipt Date: 20230412
  Transmission Date: 20230721
  Serious: Yes (Death, Other)
  Sender: FDA-Public Use
  Company Number: IN-PFIZER INC-2021542880

PATIENT
  Age: 71 Year
  Sex: Female

DRUGS (4)
  1. PALBOCICLIB [Suspect]
     Active Substance: PALBOCICLIB
     Indication: Breast cancer metastatic
     Dosage: 125 MG, 1X/DAY
     Route: 048
     Dates: start: 20210304
  2. PALBOCICLIB [Suspect]
     Active Substance: PALBOCICLIB
     Dosage: 125 MG, 1X/DAY
     Route: 048
  3. FULVESTRANT [Concomitant]
     Active Substance: FULVESTRANT
     Indication: Breast cancer
     Dosage: IN EACH BUTTOCK (500 MG TOTAL)
     Route: 030
  4. CALCIUM\CHOLECALCIFEROL [Concomitant]
     Active Substance: CALCIUM\CHOLECALCIFEROL
     Dosage: 500 MG

REACTIONS (12)
  - Urinary tract infection [Fatal]
  - Deep vein thrombosis [Unknown]
  - Leukopenia [Unknown]
  - Ankle fracture [Unknown]
  - Peripheral swelling [Unknown]
  - Pallor [Unknown]
  - Oedema peripheral [Unknown]
  - Eastern Cooperative Oncology Group performance status worsened [Unknown]
  - Full blood count decreased [Unknown]
  - Fatigue [Unknown]
  - Hypersomnia [Unknown]
  - Product dose omission issue [Unknown]

NARRATIVE: CASE EVENT DATE: 20221101
